FAERS Safety Report 5254170-6 (Version None)
Quarter: 2007Q1

REPORT INFORMATION
  Report Type: 
  Country: None (occurrence: None)
  Receive Date: 20070302
  Receipt Date: 20070221
  Transmission Date: 20070707
  Serious: Yes (Death)
  Sender: FDA-Public Use
  Company Number: JP-MERCK-0702USA04271

PATIENT
  Age: 54 Year
  Sex: Male

DRUGS (11)
  1. HYDRODIURIL [Suspect]
     Indication: CARDIAC FAILURE CHRONIC
     Route: 048
     Dates: start: 20021014, end: 20030922
  2. HYDRODIURIL [Suspect]
     Indication: UNIVENTRICULAR HEART
     Route: 048
     Dates: start: 20021014, end: 20030922
  3. LASIX [Concomitant]
     Indication: CARDIAC FAILURE CHRONIC
     Route: 048
  4. LASIX [Concomitant]
     Indication: UNIVENTRICULAR HEART
     Route: 048
  5. BLOPRESS [Concomitant]
     Indication: CARDIAC FAILURE CHRONIC
     Route: 048
     Dates: start: 20020207
  6. BLOPRESS [Concomitant]
     Indication: UNIVENTRICULAR HEART
     Route: 048
     Dates: start: 20020207
  7. AMIODARONE HYDROCHLORIDE [Concomitant]
     Indication: CARDIAC FAILURE CHRONIC
     Route: 048
     Dates: start: 20020305
  8. AMIODARONE HYDROCHLORIDE [Concomitant]
     Indication: UNIVENTRICULAR HEART
     Route: 048
     Dates: start: 20020305
  9. KALIMATE [Concomitant]
     Indication: CARDIAC FAILURE CHRONIC
     Route: 048
     Dates: start: 20020212
  10. ALLOPURINOL [Concomitant]
     Indication: CARDIAC FAILURE CHRONIC
     Route: 048
     Dates: start: 20020311
  11. ALLOPURINOL [Concomitant]
     Indication: UNIVENTRICULAR HEART
     Route: 048
     Dates: start: 20020311

REACTIONS (3)
  - CARDIAC FAILURE CHRONIC [None]
  - MELANODERMIA [None]
  - PHOTOSENSITIVITY REACTION [None]
